FAERS Safety Report 4538214-2 (Version None)
Quarter: 2004Q4

REPORT INFORMATION
  Report Type: 
  Country: None (occurrence: None)
  Receive Date: 20041221
  Receipt Date: 20041213
  Transmission Date: 20050328
  Serious: Yes (Life-Threatening, Hospitalization, Other)
  Sender: FDA-Public Use
  Company Number: 2004076256

PATIENT
  Age: 76 Year
  Sex: Female

DRUGS (8)
  1. NEURONTIN [Suspect]
     Indication: PERIPHERAL SENSORY NEUROPATHY
     Dosage: 1200 MG (600 MG, 2 IN 1 D)
     Dates: start: 20040601, end: 20041001
  2. GATIFLOXACIN [Suspect]
     Indication: URINARY TRACT INFECTION
     Dosage: (400 MG), ORAL
     Route: 048
     Dates: start: 20040917, end: 20040920
  3. PRAVASTATIN SODIUM [Concomitant]
  4. ROSIGLITAZONE MALEATE [Concomitant]
  5. GEZOR (HYDROCHLOROTHIAZIDE, QUINAPRIL HYDROCHLORIDE) [Concomitant]
  6. RISEDRONATE SODIUM (ROSIGLITAZONE MALEATE) [Concomitant]
  7. NORTRIPTYLINE HCL [Concomitant]
  8. RALOXIFENE HCL [Concomitant]

REACTIONS (4)
  - HAEMODIALYSIS [None]
  - RENAL FAILURE ACUTE [None]
  - RENAL TUBULAR NECROSIS [None]
  - URINARY TRACT INFECTION [None]
